FAERS Safety Report 4865056-0 (Version None)
Quarter: 2005Q4

REPORT INFORMATION
  Report Type: 
  Country: None (occurrence: None)
  Receive Date: 20051219
  Receipt Date: 20051206
  Transmission Date: 20060501
  Serious: Yes (Other)
  Sender: FDA-Public Use
  Company Number: 2005158157

PATIENT
  Age: 71 Year
  Sex: Male
  Weight: 56.9 kg

DRUGS (16)
  1. VFEND [Suspect]
     Indication: MYCOTIC CORNEAL ULCER
     Dosage: 320 MG (BID) INTRAVENOUS
     Route: 042
     Dates: start: 20051028, end: 20051116
  2. FLUCONAZOLE [Suspect]
     Indication: PROPHYLAXIS
     Dosage: INTRAOCULAR
     Route: 031
     Dates: start: 20051028
  3. PRODIF (FOSFLUCONAZOLE) [Suspect]
     Indication: MYCOTIC CORNEAL ULCER
     Dosage: 400 MG INTRAVENOUS
     Route: 042
     Dates: start: 20051031, end: 20051109
  4. GATIFLOXACIN [Suspect]
     Indication: PROPHYLAXIS
     Dosage: INTRAOCULAR
     Route: 031
     Dates: start: 20051024
  5. SULPELIN (SULBENICILLIN) [Suspect]
     Indication: PROPHYLAXIS
     Dosage: INTRAOCULAR
     Route: 031
  6. ATROPINE SULFATE [Concomitant]
  7. TARAVID (OFLOXACIN) [Concomitant]
  8. ZOVIRAX [Concomitant]
  9. VANCOMYCIN [Concomitant]
  10. HYALEIN MINI (HYALURONATE SODIUM) [Concomitant]
  11. VALTREX [Concomitant]
  12. TIENAM (CILASTATIN, IMIPENEM) [Concomitant]
  13. MAXIPIME [Concomitant]
  14. FLOMOX (CEFCAPENE PIVOXIL HYDROCHLORIDE) [Concomitant]
  15. MINOCYCLINE HCL [Concomitant]
  16. SAFFRAC (DICLOFENAC SODIUM) [Concomitant]

REACTIONS (13)
  - AORTIC VALVE INCOMPETENCE [None]
  - BIFASCICULAR BLOCK [None]
  - BUNDLE BRANCH BLOCK LEFT [None]
  - BUNDLE BRANCH BLOCK RIGHT [None]
  - CARDIAC FAILURE [None]
  - CARDIAC VALVE DISEASE [None]
  - FLUID RETENTION [None]
  - GAMMA-GLUTAMYLTRANSFERASE INCREASED [None]
  - MALAISE [None]
  - MITRAL VALVE INCOMPETENCE [None]
  - TRICUSPID VALVE INCOMPETENCE [None]
  - ULCERATIVE KERATITIS [None]
  - WEIGHT INCREASED [None]
